FAERS Safety Report 6646891-5 (Version None)
Quarter: 2010Q1

REPORT INFORMATION
  Report Type: 
  Country: None (occurrence: None)
  Receive Date: 20100323
  Receipt Date: 20100309
  Transmission Date: 20100710
  Serious: Yes (Other)
  Sender: FDA-Public Use
  Company Number: DK-MYLANLABS-2010S1003928

PATIENT
  Sex: Female
  Weight: 65 kg

DRUGS (2)
  1. PIROXICAM [Suspect]
     Indication: RHEUMATOID ARTHRITIS
     Dosage: 20 MILLIGRAM(S)
     Route: 048
  2. CENTYL MED KALIUMKLORID [Concomitant]
     Indication: DIURETIC THERAPY
     Route: 048

REACTIONS (3)
  - DYSPEPSIA [None]
  - INFLUENZA LIKE ILLNESS [None]
  - RHEUMATOID ARTHRITIS [None]
